FAERS Safety Report 4892600-X (Version None)
Quarter: 2006Q1

REPORT INFORMATION
  Report Type: 
  Country: None (occurrence: None)
  Receive Date: 20060126
  Receipt Date: 20060105
  Transmission Date: 20060701
  Serious: Yes (Hospitalization)
  Sender: FDA-Public Use
  Company Number: FR-ROCHE-431299

PATIENT
  Age: 93 Year
  Sex: Female

DRUGS (1)
  1. ROCEPHIN [Suspect]
     Indication: ERYSIPELAS
     Dosage: FORM REPORTED AS INJECTABLE SOLUTION.
     Route: 030
     Dates: start: 20051215, end: 20051218

REACTIONS (4)
  - PRURITUS [None]
  - RASH MACULO-PAPULAR [None]
  - SKIN EXFOLIATION [None]
  - TOXIC SKIN ERUPTION [None]
